FAERS Safety Report 15500688 (Version 1)
Quarter: 2018Q4

REPORT INFORMATION
  Report Type: Report from Study
  Country: None (occurrence: ES)
  Receive Date: 20181015
  Receipt Date: 20181015
  Transmission Date: 20190205
  Serious: Yes (Hospitalization)
  Sender: FDA-Public Use
  Company Number: ES-ABBVIE-18K-144-2516376-00

PATIENT
  Age: 51 Year
  Sex: Female

DRUGS (1)
  1. HUMIRA [Suspect]
     Active Substance: ADALIMUMAB
     Indication: ANKYLOSING SPONDYLITIS
     Dosage: 40 MG / 2 WEEKS
     Route: 058
     Dates: start: 20120511

REACTIONS (1)
  - Myelopathy [Recovered/Resolved with Sequelae]

NARRATIVE: CASE EVENT DATE: 20161228
